FAERS Safety Report 23210184 (Version 1)
Quarter: 2023Q4

REPORT INFORMATION
  Report Type: Spontaneous
  Country: GB (occurrence: GB)
  Receive Date: 20231121
  Receipt Date: 20231121
  Transmission Date: 20240110
  Serious: Yes (Other)
  Sender: FDA-Public Use
  Company Number: None

PATIENT
  Age: 39 Year
  Sex: Female
  Weight: 78 kg

DRUGS (1)
  1. MONTELUKAST [Suspect]
     Active Substance: MONTELUKAST SODIUM
     Indication: Asthma
     Dosage: 10MG ONCE A DAY AT NIGHT ; ;
     Dates: start: 20231106, end: 20231107

REACTIONS (6)
  - Nausea [Recovering/Resolving]
  - Headache [Recovering/Resolving]
  - Influenza like illness [Not Recovered/Not Resolved]
  - Pyrexia [Recovered/Resolved]
  - Chills [Recovered/Resolved]
  - Lethargy [Recovering/Resolving]

NARRATIVE: CASE EVENT DATE: 20231107
